FAERS Safety Report 20819074 (Version 1)
Quarter: 2022Q2

REPORT INFORMATION
  Report Type: Spontaneous
  Country: US (occurrence: US)
  Receive Date: 20220512
  Receipt Date: 20220512
  Transmission Date: 20220721
  Serious: Yes (Other)
  Sender: FDA-Public Use
  Company Number: US-drreddys-SPO/USA/22/0149780

PATIENT
  Age: 18 Year
  Sex: Female

DRUGS (1)
  1. ZENATANE [Suspect]
     Active Substance: ISOTRETINOIN
     Indication: Acne cystic
     Dosage: RMA ISSUE DATE: 24 MARCH 2022 11:33:48 AM, 03 FEBRUARY 2022 07:48:25 PM, 30 NOVEMBER 2021 04:45:42 P

REACTIONS (1)
  - Mood altered [Unknown]
